FAERS Safety Report 4535784-5 (Version None)
Quarter: 2004Q4

REPORT INFORMATION
  Report Type: 
  Country: None (occurrence: None)
  Receive Date: 20041223
  Receipt Date: 20040305
  Transmission Date: 20050328
  Serious: No
  Sender: FDA-Public Use
  Company Number: US-GLAXOSMITHKLINE-A0501980A

PATIENT
  Age: 75 Year
  Sex: Male

DRUGS (11)
  1. FLONASE [Suspect]
     Dosage: 2SPR PER DAY
     Route: 045
     Dates: start: 20040101
  2. PLAVIX [Concomitant]
  3. ASPIRIN [Concomitant]
  4. LIPITOR [Concomitant]
  5. NITROGLYCERIN [Concomitant]
  6. ALLEGRA [Concomitant]
  7. ENALAPRIL [Concomitant]
  8. ZETIA [Concomitant]
  9. ANDRODERM [Concomitant]
  10. GUAIFENESIN [Concomitant]
  11. ATENOLOL [Concomitant]

REACTIONS (1)
  - EPISTAXIS [None]
